FAERS Safety Report 7559870-0 (Version None)
Quarter: 2011Q2

REPORT INFORMATION
  Report Type: 
  Country: None (occurrence: None)
  Receive Date: 20110621
  Receipt Date: 20110613
  Transmission Date: 20111010
  Serious: Yes (Death, Life-Threatening)
  Sender: FDA-Public Use
  Company Number: JP-ASTRAZENECA-2011SE24678

PATIENT
  Age: 76 Year
  Sex: Male

DRUGS (14)
  1. OPALMON [Concomitant]
     Route: 048
  2. MUCOSTA [Concomitant]
     Route: 048
  3. MEROPENEM [Suspect]
     Indication: PNEUMONIA
     Route: 042
     Dates: start: 20110416, end: 20110418
  4. MAGMITT [Concomitant]
     Route: 048
  5. NORVASC [Concomitant]
     Route: 048
  6. CANDESARTAN CILEXETIL [Concomitant]
     Route: 048
  7. VOLTAREN [Concomitant]
     Route: 048
  8. UNSPECIFIED MEDICATION [Concomitant]
     Route: 048
     Dates: start: 20110416
  9. ALLOID G [Concomitant]
     Route: 048
  10. MUCOSOLVAN [Concomitant]
     Route: 048
  11. LANSOPRAZOLE [Concomitant]
     Route: 048
  12. SYMMETREL [Concomitant]
     Route: 048
     Dates: start: 20110405
  13. MARZULENE-S [Concomitant]
     Route: 048
  14. LOXONIN [Concomitant]
     Route: 048

REACTIONS (1)
  - INTERSTITIAL LUNG DISEASE [None]
